FAERS Safety Report 16048626 (Version 2)
Quarter: 2019Q1

REPORT INFORMATION
  Report Type: Spontaneous
  Country: DE (occurrence: DE)
  Receive Date: 20190307
  Receipt Date: 20190313
  Transmission Date: 20190418
  Serious: No
  Sender: FDA-Public Use
  Company Number: DE-JAZZ-2019-DE-003142

PATIENT
  Age: 15 Year
  Sex: Female

DRUGS (11)
  1. CORTISONE [Suspect]
     Active Substance: CORTISONE\HYDROCORTISONE
     Indication: ACUTE LYMPHOCYTIC LEUKAEMIA
     Dosage: UNKNOWN DOSE
     Route: 065
  2. CYCLOPHOSPHAMIDE. [Suspect]
     Active Substance: CYCLOPHOSPHAMIDE
     Indication: ACUTE LYMPHOCYTIC LEUKAEMIA
     Dosage: UNKNOWN DOSE
     Route: 065
  3. METHOTREXATE. [Suspect]
     Active Substance: METHOTREXATE
     Dosage: UNKNOWN DOSE
     Route: 042
  4. DAUNORUBICIN [Suspect]
     Active Substance: DAUNORUBICIN
     Indication: ACUTE LYMPHOCYTIC LEUKAEMIA
     Dosage: UNKNOWN DOSE
     Route: 065
  5. MERCAPTOPURINE. [Suspect]
     Active Substance: MERCAPTOPURINE
     Indication: ACUTE LYMPHOCYTIC LEUKAEMIA
     Dosage: UNKNOWN DOSE
     Route: 065
  6. VINCRISTINE [Suspect]
     Active Substance: VINCRISTINE
     Indication: ACUTE LYMPHOCYTIC LEUKAEMIA
     Dosage: UNKNOWN DOSE
     Route: 065
  7. THIOGUANINE [Suspect]
     Active Substance: THIOGUANINE
     Indication: ACUTE LYMPHOCYTIC LEUKAEMIA
     Dosage: UNKNOWN DOSE
     Route: 065
  8. ASPARAGINASE [Suspect]
     Active Substance: ASPARAGINASE
     Indication: ACUTE LYMPHOCYTIC LEUKAEMIA
     Dosage: UNKNOWN DOSE
     Route: 065
  9. CYTARABINE. [Suspect]
     Active Substance: CYTARABINE
     Indication: ACUTE LYMPHOCYTIC LEUKAEMIA
     Dosage: UNKNOWN DOSE
     Route: 051
  10. DOXORUBICIN [Suspect]
     Active Substance: DOXORUBICIN
     Indication: ACUTE LYMPHOCYTIC LEUKAEMIA
     Dosage: UNKNOWN DOSE
     Route: 051
  11. METHOTREXATE. [Suspect]
     Active Substance: METHOTREXATE
     Indication: ACUTE LYMPHOCYTIC LEUKAEMIA
     Dosage: INTRATHECAL AND INTRAVENOUS
     Route: 037

REACTIONS (1)
  - No adverse event [Unknown]
